FAERS Safety Report 16359562 (Version 2)
Quarter: 2019Q3

REPORT INFORMATION
  Report Type: Spontaneous
  Country: PL (occurrence: PL)
  Receive Date: 20190528
  Receipt Date: 20190709
  Transmission Date: 20191004
  Serious: Yes (Other)
  Sender: FDA-Public Use
  Company Number: PL-TEVA-2019-PL-1055085

PATIENT
  Age: 52 Year
  Sex: Female

DRUGS (2)
  1. ATORVASTATIN CALCIUM. [Suspect]
     Active Substance: ATORVASTATIN CALCIUM
     Indication: PRODUCT USED FOR UNKNOWN INDICATION
     Dosage: 40 MILLIGRAM DAILY;
     Route: 065
  2. EZETIMIBE. [Suspect]
     Active Substance: EZETIMIBE
     Indication: PRODUCT USED FOR UNKNOWN INDICATION
     Dosage: 10 MILLIGRAM DAILY;
     Route: 065

REACTIONS (8)
  - Fibrosis [Unknown]
  - Autoimmune hepatitis [Unknown]
  - Jaundice [Unknown]
  - Malaise [Unknown]
  - Copper metabolism disorder [Unknown]
  - Weight decreased [Unknown]
  - Hepatitis [Unknown]
  - Cholestasis [Unknown]
